FAERS Safety Report 8141767-9 (Version None)
Quarter: 2012Q1

REPORT INFORMATION
  Report Type: 
  Country: None (occurrence: None)
  Receive Date: 20120216
  Receipt Date: 20120215
  Transmission Date: 20120608
  Serious: No
  Sender: FDA-Public Use
  Company Number: US-PFIZER INC-2012041272

PATIENT
  Sex: Female
  Weight: 52.154 kg

DRUGS (4)
  1. DIOVAN HCT [Concomitant]
     Indication: HYPERTENSION
     Dosage: UNK
  2. CHANTIX [Suspect]
     Dosage: UNK
     Route: 048
  3. LEVAQUIN [Concomitant]
     Dosage: UNK
  4. CHANTIX [Suspect]
     Indication: SMOKING CESSATION THERAPY
     Dosage: 0.5 MG, 1X/DAY
     Route: 048
     Dates: start: 20120206

REACTIONS (2)
  - GASTRIC DISORDER [None]
  - DIZZINESS [None]
